FAERS Safety Report 12350516 (Version 1)
Quarter: 2016Q2

REPORT INFORMATION
  Report Type: Spontaneous
  Country: US (occurrence: None)
  Receive Date: 20160509
  Receipt Date: 20160509
  Transmission Date: 20160815
  Serious: Yes (Other)
  Sender: FDA-Public Use
  Company Number: None

PATIENT
  Age: 33 Year
  Sex: Female
  Weight: 85.73 kg

DRUGS (1)
  1. DOXYCYCLINE, 100 MG [Suspect]
     Active Substance: DOXYCYCLINE
     Indication: BARTHOLIN^S ABSCESS
     Route: 048
     Dates: start: 20160505, end: 20160505

REACTIONS (10)
  - Tremor [None]
  - Hangover [None]
  - Dizziness [None]
  - Aphasia [None]
  - Headache [None]
  - Throat tightness [None]
  - Movement disorder [None]
  - Pain [None]
  - Feeling hot [None]
  - Fall [None]

NARRATIVE: CASE EVENT DATE: 20160505
